FAERS Safety Report 9748993 (Version 1)
Quarter: 2013Q4

REPORT INFORMATION
  Report Type: Spontaneous
  Country: US (occurrence: US)
  Receive Date: 20131212
  Receipt Date: 20131212
  Transmission Date: 20140711
  Serious: No
  Sender: FDA-Public Use
  Company Number: US-TEVA-389835USA

PATIENT
  Age: 34 Year
  Sex: Female
  Weight: 59.93 kg

DRUGS (4)
  1. PARAGARD 380A [Suspect]
     Indication: CONTRACEPTION
     Route: 015
     Dates: start: 20121010, end: 20130302
  2. MULTIVITAMIN [Concomitant]
     Indication: NUTRITIONAL SUPPLEMENTATION
  3. IBUPROFEN [Concomitant]
     Indication: DYSMENORRHOEA
  4. IBUPROFEN [Concomitant]
     Indication: PAIN

REACTIONS (2)
  - Menorrhagia [Not Recovered/Not Resolved]
  - Device expulsion [Recovered/Resolved]
